APPROVED DRUG PRODUCT: PRALIDOXIME CHLORIDE
Active Ingredient: PRALIDOXIME CHLORIDE
Strength: 300MG/ML
Dosage Form/Route: INJECTABLE;INJECTION
Application: N018799 | Product #001
Applicant: BAXTER HEALTHCARE CORP ANESTHESIA CRITICAL CARE
Approved: Dec 13, 1982 | RLD: No | RS: No | Type: DISCN